FAERS Safety Report 7132856-6 (Version None)
Quarter: 2010Q4

REPORT INFORMATION
  Report Type: 
  Country: None (occurrence: None)
  Receive Date: 20101202
  Receipt Date: 20101130
  Transmission Date: 20110411
  Serious: Yes (Hospitalization)
  Sender: FDA-Public Use
  Company Number: IT-BRISTOL-MYERS SQUIBB COMPANY-15390412

PATIENT
  Age: 66 Year
  Sex: Male

DRUGS (9)
  1. COUMADIN [Suspect]
     Indication: PROPHYLAXIS
     Dosage: 1 DF:1 POSOLOGIC UNIT;
     Dates: start: 19970101, end: 20100929
  2. ASCRIPTIN [Suspect]
     Indication: PROPHYLAXIS
     Dosage: 1 DF:1 POSOLOGIC UNIT;
     Dates: start: 19970101, end: 20100929
  3. ZYLORIC [Suspect]
     Indication: HYPERURICAEMIA
     Dosage: TABS;
     Route: 048
     Dates: start: 20090101, end: 20100929
  4. ENAPREN [Concomitant]
     Dosage: TABS
     Route: 048
  5. SEACOR [Concomitant]
     Dosage: 1 DF:1 POSOLOGIC UNIT.
  6. BLOPRESS [Concomitant]
     Dosage: 1 DF:2 POSOLOGIC UNITS 4MG TABS
     Route: 048
  7. LANOXIN [Concomitant]
     Dosage: TABS
     Route: 048
  8. NOVONORM [Concomitant]
  9. PARIET [Concomitant]

REACTIONS (7)
  - ANAEMIA [None]
  - GASTRITIS [None]
  - GASTRITIS EROSIVE [None]
  - GASTROINTESTINAL HAEMORRHAGE [None]
  - HELICOBACTER GASTRITIS [None]
  - INTERNATIONAL NORMALISED RATIO INCREASED [None]
  - INTESTINAL ULCER [None]
